FAERS Safety Report 24427170 (Version 2)
Quarter: 2025Q2

REPORT INFORMATION
  Report Type: Report from Study
  Country: DE (occurrence: DE)
  Receive Date: 20241011
  Receipt Date: 20250531
  Transmission Date: 20250716
  Serious: Yes (Other)
  Sender: STEMLINE THERAPEUTICS
  Company Number: DE-STEMLINE THERAPEUTICS B.V.-2024-STML-DE005303

PATIENT

DRUGS (1)
  1. ELACESTRANT [Suspect]
     Active Substance: ELACESTRANT
     Indication: Breast cancer metastatic
     Route: 065

REACTIONS (18)
  - Neuropathy peripheral [Unknown]
  - Libido decreased [Unknown]
  - Cognitive disorder [Unknown]
  - Weight increased [Unknown]
  - Hot flush [Unknown]
  - Night sweats [Unknown]
  - Palmar-plantar erythrodysaesthesia syndrome [Unknown]
  - Impaired quality of life [Unknown]
  - Loss of personal independence in daily activities [Unknown]
  - Anxiety [Unknown]
  - Depression [Unknown]
  - Infection [Unknown]
  - Bone pain [Unknown]
  - Arthralgia [Unknown]
  - Ill-defined disorder [Unknown]
  - Fatigue [Unknown]
  - Headache [Unknown]
  - Pain [Unknown]
